FAERS Safety Report 19256437 (Version 2)
Quarter: 2021Q2

REPORT INFORMATION
  Report Type: Spontaneous
  Country: GB (occurrence: GB)
  Receive Date: 20210514
  Receipt Date: 20210527
  Transmission Date: 20210717
  Serious: Yes (Life-Threatening, Hospitalization, Other)
  Sender: FDA-Public Use
  Company Number: GB-AUROBINDO-AUR-APL-2021-019321

PATIENT
  Age: 30 Year
  Sex: Female

DRUGS (1)
  1. PARACETAMOL [Suspect]
     Active Substance: ACETAMINOPHEN
     Indication: PRODUCT USED FOR UNKNOWN INDICATION
     Dosage: 30 GRAM TOTAL
     Route: 048

REACTIONS (9)
  - Hepatic encephalopathy [Recovering/Resolving]
  - Overdose [Recovering/Resolving]
  - Hypoglycaemia [Recovering/Resolving]
  - Acidosis [Recovering/Resolving]
  - Acute hepatic failure [Recovering/Resolving]
  - Hyperlactacidaemia [Recovering/Resolving]
  - Coagulopathy [Recovering/Resolving]
  - Jaundice [Recovering/Resolving]
  - Hypotension [Recovering/Resolving]
